FAERS Safety Report 7521124-6 (Version None)
Quarter: 2011Q2

REPORT INFORMATION
  Report Type: 
  Country: None (occurrence: None)
  Receive Date: 20110603
  Receipt Date: 20101206
  Transmission Date: 20111010
  Serious: Yes (Congenital Anomaly, Other)
  Sender: FDA-Public Use
  Company Number: US-BAYER-2010-002202

PATIENT

DRUGS (1)
  1. MIRENA [Suspect]

REACTIONS (1)
  - CLEFT LIP [None]
